FAERS Safety Report 5891415-3 (Version None)
Quarter: 2008Q3

REPORT INFORMATION
  Report Type: 
  Country: None (occurrence: None)
  Receive Date: 20080922
  Receipt Date: 20080911
  Transmission Date: 20090109
  Serious: Yes (Hospitalization)
  Sender: FDA-Public Use
  Company Number: JP-MERCK-0809USA01799

PATIENT
  Age: 17 Year
  Sex: Male

DRUGS (3)
  1. SINGULAIR [Suspect]
     Indication: ASTHMA
     Route: 048
     Dates: start: 20080715, end: 20080909
  2. THEO-DUR [Concomitant]
     Indication: ASTHMA
     Route: 048
     Dates: start: 20080715, end: 20080909
  3. ADOAIR [Concomitant]
     Indication: ASTHMA
     Dates: start: 20080715, end: 20080909

REACTIONS (1)
  - ALLERGIC GRANULOMATOUS ANGIITIS [None]
